FAERS Safety Report 24651817 (Version 1)
Quarter: 2024Q4

REPORT INFORMATION
  Report Type: Report from Study
  Country: CA (occurrence: CA)
  Receive Date: 20241122
  Receipt Date: 20241122
  Transmission Date: 20250115
  Serious: Yes (Hospitalization, Other)
  Sender: ALEXION PHARMACEUTICALS
  Company Number: CA-AstraZeneca-CH-00741286A

PATIENT

DRUGS (7)
  1. TEZEPELUMAB [Suspect]
     Active Substance: TEZEPELUMAB
     Indication: Asthma
     Dosage: 210 MILLIGRAM
  2. TEZEPELUMAB [Suspect]
     Active Substance: TEZEPELUMAB
     Dosage: UNK
  3. SPIRIVA RESPIMAT [Concomitant]
     Active Substance: TIOTROPIUM BROMIDE
     Dosage: 2.5 MICROGRAM, QD
  4. VENTOLIN [Concomitant]
     Active Substance: ALBUTEROL SULFATE
     Dosage: UNK
  5. BREO ELLIPTA [Concomitant]
     Active Substance: FLUTICASONE FUROATE\VILANTEROL TRIFENATATE
     Dosage: 200 MICROGRAM, QD
  6. SYMBICORT [Concomitant]
     Active Substance: BUDESONIDE\FORMOTEROL FUMARATE DIHYDRATE
     Dosage: 2 DOSAGE FORM, TID
  7. SYMBICORT [Concomitant]
     Active Substance: BUDESONIDE\FORMOTEROL FUMARATE DIHYDRATE
     Dosage: UNK, PRN

REACTIONS (12)
  - Confusional state [Unknown]
  - Visual impairment [Unknown]
  - Urinary tract infection [Unknown]
  - Gastrointestinal infection [Unknown]
  - Anaemia [Unknown]
  - Memory impairment [Unknown]
  - Pneumonia [Recovering/Resolving]
  - Hallucination [Recovering/Resolving]
  - Diarrhoea [Recovering/Resolving]
  - Pyrexia [Recovering/Resolving]
  - Fatigue [Recovering/Resolving]
  - Malaise [Unknown]
